FAERS Safety Report 9020616 (Version 1)
Quarter: 2013Q1

REPORT INFORMATION
  Report Type: Spontaneous
  Country: US (occurrence: US)
  Receive Date: 20130119
  Receipt Date: 20130119
  Transmission Date: 20140127
  Serious: No
  Sender: FDA-Public Use
  Company Number: US-ALLERGAN-1206882US

PATIENT
  Age: 42 Year
  Sex: Female

DRUGS (4)
  1. BOTOX COSMETIC [Suspect]
     Indication: SKIN WRINKLING
     Dosage: 12 UNITS, SINGLE
     Route: 030
     Dates: start: 20101124, end: 20101124
  2. BOTOX COSMETIC [Suspect]
     Dosage: 3 UNITS, SINGLE
     Route: 030
     Dates: start: 20101209, end: 20101209
  3. BOTOX COSMETIC [Suspect]
     Dosage: UNK
     Dates: start: 2008, end: 2008
  4. VITAMINS [Concomitant]
     Indication: PRODUCT USED FOR UNKNOWN INDICATION

REACTIONS (4)
  - Head deformity [Unknown]
  - Skin wrinkling [Recovering/Resolving]
  - Skin disorder [Recovering/Resolving]
  - Skin wrinkling [Recovering/Resolving]
